FAERS Safety Report 9786513 (Version 3)
Quarter: 2014Q1

REPORT INFORMATION
  Report Type: Report from Study
  Country: US (occurrence: US)
  Receive Date: 20131227
  Receipt Date: 20140314
  Transmission Date: 20141002
  Serious: Yes (Other)
  Sender: FDA-Public Use
  Company Number: US-US-EMD SERONO, INC.-7259374

PATIENT
  Age: 38 Year
  Sex: Male

DRUGS (1)
  1. REBIF [Suspect]
     Indication: MULTIPLE SCLEROSIS
     Route: 058
     Dates: start: 20131014

REACTIONS (7)
  - Deafness [Unknown]
  - Fall [Unknown]
  - Head injury [Recovering/Resolving]
  - Convulsion [Unknown]
  - Anticonvulsant drug level decreased [Unknown]
  - White blood cell count increased [Unknown]
  - Stress [Unknown]
